FAERS Safety Report 22006489 (Version 1)
Quarter: 2023Q1

REPORT INFORMATION
  Report Type: Spontaneous
  Country: US (occurrence: US)
  Receive Date: 20230217
  Receipt Date: 20230217
  Transmission Date: 20230418
  Serious: Yes (Hospitalization, Other)
  Sender: FDA-Public Use
  Company Number: US-PFIZER INC-PV202300028653

PATIENT
  Age: 52 Year
  Sex: Male

DRUGS (2)
  1. XALKORI [Suspect]
     Active Substance: CRIZOTINIB
     Dosage: 250 MG
  2. ALECTINIB [Concomitant]
     Active Substance: ALECTINIB
     Dosage: UNK

REACTIONS (3)
  - Vasogenic cerebral oedema [Recovering/Resolving]
  - Asthenia [Unknown]
  - Neoplasm progression [Unknown]

NARRATIVE: CASE EVENT DATE: 20201120
